FAERS Safety Report 18946349 (Version 10)
Quarter: 2022Q3

REPORT INFORMATION
  Report Type: Report from Study
  Country: MX (occurrence: MX)
  Receive Date: 20210226
  Receipt Date: 20220805
  Transmission Date: 20221027
  Serious: Yes (Other)
  Sender: FDA-Public Use
  Company Number: MX-TAKEDA-MX202012509

PATIENT
  Age: 10 Year
  Sex: Male
  Weight: 42 kg

DRUGS (6)
  1. IDURSULFASE [Suspect]
     Active Substance: IDURSULFASE
     Indication: Mucopolysaccharidosis II
     Dosage: UNK
     Route: 042
     Dates: start: 20200325
  2. IDURSULFASE [Suspect]
     Active Substance: IDURSULFASE
     Dosage: 3 DOSAGE FORM, 1X/WEEK
     Route: 042
     Dates: start: 20200416
  3. IDURSULFASE [Suspect]
     Active Substance: IDURSULFASE
     Dosage: 3 DOSAGE FORM, 1X/WEEK
     Route: 042
  4. IDURSULFASE [Suspect]
     Active Substance: IDURSULFASE
     Dosage: 18 MILLIGRAM, 1/WEEK
     Route: 042
  5. VITAMIN D NOS [Concomitant]
     Active Substance: VITAMIN D NOS
     Indication: Vitamin D deficiency
     Dosage: 1 DOSAGE FORM, QD
     Route: 065
  6. IBUPROFEN [Concomitant]
     Active Substance: IBUPROFEN
     Indication: Pain
     Dosage: 500 MILLIGRAM
     Route: 065

REACTIONS (4)
  - Cryptorchism [Recovered/Resolved]
  - Oropharyngeal discomfort [Recovering/Resolving]
  - Product dose omission issue [Recovering/Resolving]
  - Therapy interrupted [Recovering/Resolving]

NARRATIVE: CASE EVENT DATE: 20200402
